FAERS Safety Report 9796031 (Version 2)
Quarter: 2014Q2

REPORT INFORMATION
  Report Type: Spontaneous
  Country: IT (occurrence: IT)
  Receive Date: 20140103
  Receipt Date: 20140411
  Transmission Date: 20141212
  Serious: Yes (Other)
  Sender: FDA-Public Use
  Company Number: IT-ACTAVIS-2013-24111

PATIENT
  Age: 73 Year
  Sex: Male

DRUGS (2)
  1. OXALIPLATIN (UNKNOWN) [Suspect]
     Indication: COLON CANCER
     Dosage: 122.4 MG, PER CYCLE
     Route: 042
     Dates: start: 20130715, end: 20130715
  2. FLUOROURACIL (UNKNOWN) [Suspect]
     Indication: COLON CANCER
     Dosage: 4032 MG, PER CYCLE
     Route: 042
     Dates: start: 20130715, end: 20130717

REACTIONS (1)
  - Thrombocytopenia [Recovered/Resolved]
